FAERS Safety Report 22652014 (Version 1)
Quarter: 2023Q2

REPORT INFORMATION
  Report Type: Spontaneous
  Country: US (occurrence: US)
  Receive Date: 20230628
  Receipt Date: 20230628
  Transmission Date: 20230721
  Serious: Yes (Hospitalization)
  Sender: FDA-Public Use
  Company Number: US-Rhythm Pharmaceuticals, Inc.-2023RHM000004

PATIENT
  Age: 10 Year
  Sex: Male

DRUGS (10)
  1. IMCIVREE [Suspect]
     Active Substance: SETMELANOTIDE
     Indication: Laurence-Moon-Bardet-Biedl syndrome
     Route: 058
  2. IMCIVREE [Suspect]
     Active Substance: SETMELANOTIDE
     Route: 065
     Dates: start: 20230116
  3. IMCIVREE [Suspect]
     Active Substance: SETMELANOTIDE
     Dosage: INJECT 3 MG (0.3 ML) SUBCUTANEOUSLY ONCE DAILY.
     Route: 058
     Dates: end: 202305
  4. IMCIVREE [Suspect]
     Active Substance: SETMELANOTIDE
     Dosage: INJECT 3 MG (0.3 ML) SUBCUTANEOUSLY ONCE DAILY.
     Route: 058
     Dates: start: 202306
  5. Carbonyl [Concomitant]
     Indication: Product used for unknown indication
     Route: 065
  6. ADVAIR HFA [Concomitant]
     Active Substance: FLUTICASONE PROPIONATE\SALMETEROL XINAFOATE
     Indication: Product used for unknown indication
     Route: 065
  7. ALBUTEROL [Concomitant]
     Active Substance: ALBUTEROL
     Indication: Product used for unknown indication
     Route: 065
  8. MUPIROCIN [Concomitant]
     Active Substance: MUPIROCIN
     Indication: Product used for unknown indication
     Route: 065
  9. DIAMOX SEQUELS [Concomitant]
     Active Substance: ACETAZOLAMIDE
     Indication: Product used for unknown indication
     Route: 065
  10. IRON [Concomitant]
     Active Substance: IRON
     Indication: Product used for unknown indication
     Route: 065

REACTIONS (7)
  - Post procedural infection [Unknown]
  - Weight increased [Unknown]
  - Diarrhoea [Recovered/Resolved]
  - Skin hyperpigmentation [Unknown]
  - Constipation [Recovered/Resolved]
  - Abdominal pain [Unknown]
  - Gastrointestinal disorder [Unknown]

NARRATIVE: CASE EVENT DATE: 20221231
